FAERS Safety Report 12590852 (Version 1)
Quarter: 2016Q3

REPORT INFORMATION
  Report Type: Spontaneous
  Country: BR (occurrence: BR)
  Receive Date: 20160726
  Receipt Date: 20160726
  Transmission Date: 20161109
  Serious: Yes (Other)
  Sender: FDA-Public Use
  Company Number: BR-AMGEN-BRASP2013100447

PATIENT
  Sex: Female
  Weight: 70 kg

DRUGS (1)
  1. ENBREL [Suspect]
     Active Substance: ETANERCEPT
     Indication: PRODUCT USED FOR UNKNOWN INDICATION
     Dosage: UNK
     Route: 065

REACTIONS (11)
  - Pain in extremity [Unknown]
  - Activities of daily living impaired [Unknown]
  - Hypertension [Unknown]
  - Body temperature decreased [Unknown]
  - Autoimmune hepatitis [Unknown]
  - Sjogren^s syndrome [Unknown]
  - Thyroid disorder [Unknown]
  - Asthenia [Unknown]
  - Spinal pain [Unknown]
  - Oedema peripheral [Unknown]
  - Musculoskeletal pain [Unknown]
